FAERS Safety Report 12847415 (Version 1)
Quarter: 2016Q4

REPORT INFORMATION
  Report Type: Spontaneous
  Country: JP (occurrence: JP)
  Receive Date: 20161014
  Receipt Date: 20161014
  Transmission Date: 20170207
  Serious: Yes (Other)
  Sender: FDA-Public Use
  Company Number: JP-TAKEDA-2016MPI008824

PATIENT

DRUGS (3)
  1. DEXAMETHASONE. [Suspect]
     Active Substance: DEXAMETHASONE
     Indication: PLASMA CELL MYELOMA
     Dosage: 20 MG, QD
     Route: 048
  2. VELCADE [Suspect]
     Active Substance: BORTEZOMIB
     Indication: PLASMA CELL MYELOMA
     Dosage: 1.3 MG/M2, UNK
     Route: 065
  3. TABALUMAB [Suspect]
     Active Substance: TABALUMAB
     Indication: PLASMA CELL MYELOMA
     Dosage: UNK
     Route: 042

REACTIONS (36)
  - Decreased appetite [Unknown]
  - Thrombocytopenia [Unknown]
  - Neutropenia [Unknown]
  - Vagus nerve disorder [Unknown]
  - Lymphopenia [Unknown]
  - Nasopharyngitis [Unknown]
  - Hypoalbuminaemia [Unknown]
  - Diarrhoea [Unknown]
  - Alanine aminotransferase increased [Unknown]
  - Anaemia [Unknown]
  - Skin disorder [Unknown]
  - Hypophosphataemia [Unknown]
  - Oedema peripheral [Unknown]
  - Blood creatinine increased [Unknown]
  - Eye disorder [Unknown]
  - Nausea [Unknown]
  - Peripheral sensory neuropathy [Unknown]
  - Fatigue [Unknown]
  - Injection site reaction [Unknown]
  - Respiratory disorder [Unknown]
  - Abdominal distension [Unknown]
  - Constipation [Unknown]
  - Aspartate aminotransferase increased [Unknown]
  - White blood cell count decreased [Unknown]
  - Oedema [Unknown]
  - Dizziness [Unknown]
  - Insomnia [Unknown]
  - Febrile neutropenia [Unknown]
  - Stomatitis [Unknown]
  - Pyrexia [Unknown]
  - Neuralgia [Unknown]
  - Angiopathy [Unknown]
  - Ear disorder [Unknown]
  - Dysgeusia [Unknown]
  - Hyponatraemia [Unknown]
  - Malaise [Unknown]
